FAERS Safety Report 10504285 (Version 1)
Quarter: 2014Q4

REPORT INFORMATION
  Report Type: Spontaneous
  Country: US (occurrence: US)
  Receive Date: 20141008
  Receipt Date: 20141008
  Transmission Date: 20150528
  Serious: Yes (Hospitalization, Other)
  Sender: FDA-Public Use
  Company Number: US-JNJFOC-20141002104

PATIENT
  Age: 25 Year
  Sex: Female
  Weight: 81.65 kg

DRUGS (5)
  1. ALBUTEROL. [Concomitant]
     Active Substance: ALBUTEROL
     Route: 065
  2. CLARITIN [Concomitant]
     Active Substance: LORATADINE
     Route: 065
  3. ADVAIR HFA [Concomitant]
     Active Substance: FLUTICASONE PROPIONATE\SALMETEROL XINAFOATE
     Route: 065
  4. MULTIVITAMINS [Concomitant]
     Active Substance: VITAMINS
     Route: 065
  5. REMICADE [Suspect]
     Active Substance: INFLIXIMAB
     Indication: CROHN^S DISEASE
     Route: 042

REACTIONS (6)
  - Exposure during pregnancy [Recovered/Resolved]
  - Haemorrhoids [Unknown]
  - Crohn^s disease [Unknown]
  - Vomiting in pregnancy [Recovered/Resolved]
  - Abortion spontaneous [Recovering/Resolving]
  - Anal fissure [Unknown]

NARRATIVE: CASE EVENT DATE: 201212
